FAERS Safety Report 22050666 (Version 1)
Quarter: 2023Q1

REPORT INFORMATION
  Report Type: Spontaneous
  Country: FR (occurrence: FR)
  Receive Date: 20230301
  Receipt Date: 20230301
  Transmission Date: 20230417
  Serious: Yes (Other)
  Sender: FDA-Public Use
  Company Number: FR-LUNDBECK-DKLU3058615

PATIENT
  Age: 45 Year

DRUGS (1)
  1. BRINTELLIX [Suspect]
     Active Substance: VORTIOXETINE HYDROBROMIDE
     Indication: Product used for unknown indication
     Dosage: 10 MILLIGRAM
     Route: 065
     Dates: start: 20221018, end: 20221128

REACTIONS (4)
  - Cholestasis [Unknown]
  - Cell death [Unknown]
  - Nausea [Unknown]
  - Diarrhoea [Unknown]
